FAERS Safety Report 8232159-2 (Version None)
Quarter: 2012Q1

REPORT INFORMATION
  Report Type: 
  Country: None (occurrence: None)
  Receive Date: 20120323
  Receipt Date: 20120319
  Transmission Date: 20120608
  Serious: No
  Sender: FDA-Public Use
  Company Number: US-PFIZER INC-2012072000

PATIENT
  Sex: Female
  Weight: 52.154 kg

DRUGS (18)
  1. TIMOPTIC [Suspect]
     Dosage: UNK
  2. PHENERGAN [Suspect]
     Dosage: UNK
  3. E.E.S. [Suspect]
     Dosage: UNK
  4. LIPITOR [Suspect]
     Dosage: UNK
  5. MINITRAN [Suspect]
     Dosage: UNK
  6. CELEXA [Suspect]
     Dosage: UNK
  7. TETANUS TOXOID [Suspect]
     Dosage: UNK
  8. VALIUM [Suspect]
     Dosage: UNK
  9. DARVON [Suspect]
     Dosage: UNK
  10. ERGOMAR [Suspect]
     Dosage: UNK
  11. AZOPT [Suspect]
     Dosage: UNK
  12. VICODIN [Suspect]
     Dosage: UNK
  13. ALPHAGAN [Suspect]
     Dosage: UNK
  14. TETRACYCLINE HCL [Suspect]
     Dosage: UNK
  15. CODEINE SULFATE [Suspect]
     Dosage: UNK
  16. GEMFIBROZIL [Suspect]
     Dosage: UNK
  17. CIPROFLOXACIN [Suspect]
     Dosage: UNK
  18. VELOCEF [Suspect]
     Dosage: UNK

REACTIONS (1)
  - DRUG HYPERSENSITIVITY [None]
